FAERS Safety Report 5799100-3 (Version None)
Quarter: 2008Q3

REPORT INFORMATION
  Report Type: 
  Country: None (occurrence: None)
  Receive Date: 20080702
  Receipt Date: 20080612
  Transmission Date: 20090109
  Serious: No
  Sender: FDA-Public Use
  Company Number: US-BOEHRINGER INGELHEIM GMBH, GERMANY-2008-BP-09268BP

PATIENT
  Sex: Female

DRUGS (4)
  1. SPIRIVA [Suspect]
     Indication: EMPHYSEMA
     Route: 055
  2. SYMBICORT [Concomitant]
  3. OXYGEN [Concomitant]
  4. NEBULIZER [Concomitant]

REACTIONS (2)
  - ASTHENIA [None]
  - MALAISE [None]
